FAERS Safety Report 4595950-X (Version None)
Quarter: 2005Q1

REPORT INFORMATION
  Report Type: 
  Country: None (occurrence: None)
  Receive Date: 20050224
  Receipt Date: 20050209
  Transmission Date: 20050727
  Serious: Yes (Life-Threatening)
  Sender: FDA-Public Use
  Company Number: GBS050216634

PATIENT
  Age: 36 Year
  Sex: Male
  Weight: 65 kg

DRUGS (2)
  1. FLUOXETINE [Suspect]
     Dosage: 20 MG
     Dates: start: 20040929, end: 20041201
  2. NICORETTE [Concomitant]

REACTIONS (2)
  - AGGRESSION [None]
  - PERSONALITY CHANGE [None]
